FAERS Safety Report 14903390 (Version 1)
Quarter: 2018Q2

REPORT INFORMATION
  Report Type: Spontaneous
  Country: US (occurrence: US)
  Receive Date: 20180516
  Receipt Date: 20180516
  Transmission Date: 20180711
  Serious: No
  Sender: FDA-Public Use
  Company Number: US-SA-2017SA140380

PATIENT
  Age: 38 Year
  Sex: Male

DRUGS (2)
  1. LANTUS [Suspect]
     Active Substance: INSULIN GLARGINE
     Indication: DIABETES MELLITUS
     Dosage: DOSE:55 UNIT(S)
     Route: 051
     Dates: start: 20170710
  2. NOVA [Concomitant]
     Indication: TYPE 1 DIABETES MELLITUS
     Dosage: 1.5 PER 10 CARBS; 1 U FOR EVERY 30 BG MORE THAN 120; STRENGTH: 10 (UNIT NOT REPORTED)
     Route: 065

REACTIONS (2)
  - Therapeutic response decreased [Unknown]
  - Blood glucose increased [Recovered/Resolved]

NARRATIVE: CASE EVENT DATE: 20170710
